FAERS Safety Report 15793429 (Version 1)
Quarter: 2019Q1

REPORT INFORMATION
  Report Type: Spontaneous
  Country: US (occurrence: US)
  Receive Date: 20190104
  Receipt Date: 20190104
  Transmission Date: 20190417
  Serious: Yes (Other)
  Sender: FDA-Public Use
  Company Number: None

PATIENT
  Sex: Female
  Weight: 51.75 kg

DRUGS (12)
  1. PANTOPRAZOLE [Concomitant]
     Active Substance: PANTOPRAZOLE
  2. CELEBREX [Concomitant]
     Active Substance: CELECOXIB
  3. DOCUSATE [Concomitant]
     Active Substance: DOCUSATE
  4. RANITIDINE. [Concomitant]
     Active Substance: RANITIDINE
  5. ZOLPIDEM [Concomitant]
     Active Substance: ZOLPIDEM\ZOLPIDEM TARTRATE
  6. VITAMIN C [Concomitant]
     Active Substance: ASCORBIC ACID
  7. VITAMIN D [Concomitant]
     Active Substance: CHOLECALCIFEROL
  8. CAPECITABINE. [Suspect]
     Active Substance: CAPECITABINE
     Indication: COLON CANCER
     Route: 048
     Dates: start: 20180914
  9. LOSARTAN. [Concomitant]
     Active Substance: LOSARTAN
  10. ATORVASTATIN [Concomitant]
     Active Substance: ATORVASTATIN
  11. CLOPIDOGREL [Concomitant]
     Active Substance: CLOPIDOGREL BISULFATE
  12. IRON [Concomitant]
     Active Substance: IRON

REACTIONS (1)
  - Diarrhoea [None]
